FAERS Safety Report 23473305 (Version 1)
Quarter: 2024Q1

REPORT INFORMATION
  Report Type: Spontaneous
  Country: US (occurrence: US)
  Receive Date: 20240203
  Receipt Date: 20240203
  Transmission Date: 20240410
  Serious: Yes (Other)
  Sender: FDA-Public Use
  Company Number: US-AUROBINDO-AUR-APL-2024-004051

PATIENT
  Age: 29 Year
  Sex: Female

DRUGS (4)
  1. CELECOXIB [Suspect]
     Active Substance: CELECOXIB
     Indication: Desmoid tumour
     Dosage: 200 MILLIGRAM, TWO TIMES A DAY, (3, 4) 1 WEEK PRIOR
     Route: 065
  2. SORAFENIB [Suspect]
     Active Substance: SORAFENIB
     Indication: Desmoid tumour
     Dosage: Y
     Route: 065
  3. FUROSEMIDE [Concomitant]
     Active Substance: FUROSEMIDE
     Indication: Desmoid tumour
     Dosage: 40 MILLIGRAM,ON DAY 0
     Route: 042
  4. FUROSEMIDE [Concomitant]
     Active Substance: FUROSEMIDE
     Dosage: 80 MILLIGRAM, ON DAYS 1?3
     Route: 042

REACTIONS (1)
  - Capillary leak syndrome [Unknown]
